FAERS Safety Report 12060713 (Version 4)
Quarter: 2016Q2

REPORT INFORMATION
  Report Type: Spontaneous
  Country: JP (occurrence: JP)
  Receive Date: 20160210
  Receipt Date: 20160407
  Transmission Date: 20160815
  Serious: Yes (Death)
  Sender: FDA-Public Use
  Company Number: JP-PFIZER INC-2016068280

PATIENT
  Age: 94 Year
  Sex: Female
  Weight: 41 kg

DRUGS (8)
  1. HUMALIN [Concomitant]
     Active Substance: INSULIN NOS
     Dosage: UNK
     Dates: start: 20151210, end: 20160116
  2. ELNEOPA NO.1 [Concomitant]
     Dosage: UNK
     Dates: start: 20151210, end: 20160116
  3. ZOSIN [Concomitant]
     Active Substance: CLARITHROMYCIN
     Indication: INFECTION
     Dosage: UNK, 2X/DAY
     Route: 042
     Dates: start: 20160104, end: 20160108
  4. ZYVOX [Suspect]
     Active Substance: LINEZOLID
     Indication: STAPHYLOCOCCAL INFECTION
     Dosage: 8400 MG, WEEKLY
     Route: 041
     Dates: start: 20151217, end: 20151230
  5. ZYVOX [Suspect]
     Active Substance: LINEZOLID
     Dosage: 8400 MG, WEEKLY
     Route: 041
     Dates: start: 20160102, end: 20160115
  6. AMIKACIN [Concomitant]
     Active Substance: AMIKACIN
     Indication: STAPHYLOCOCCAL INFECTION
     Dosage: 1050 MG, WEEKLY
     Route: 042
     Dates: start: 20151217, end: 20151230
  7. MAXIPIM [Concomitant]
     Indication: INFECTION
     Dosage: UNK, 2X/DAY
     Route: 042
     Dates: start: 20160108, end: 20160116
  8. INTRALIPOS [Concomitant]
     Active Substance: SOYBEAN OIL
     Dosage: UNK
     Dates: start: 20151218, end: 20160116

REACTIONS (2)
  - Bone marrow failure [Fatal]
  - Pneumonia [Fatal]

NARRATIVE: CASE EVENT DATE: 20160117
